FAERS Safety Report 18871291 (Version 1)
Quarter: 2021Q1

REPORT INFORMATION
  Report Type: Spontaneous
  Country: IT (occurrence: IT)
  Receive Date: 20210210
  Receipt Date: 20210210
  Transmission Date: 20210420
  Serious: Yes (Other)
  Sender: FDA-Public Use
  Company Number: IT-AUROBINDO-AUR-APL-2021-005300

PATIENT
  Age: 71 Year
  Sex: Male
  Weight: 72 kg

DRUGS (1)
  1. TADALAFIL FILM COATED TABLETS [Suspect]
     Active Substance: TADALAFIL
     Indication: PROSTATECTOMY
     Dosage: 20 MILLIGRAM, EVERY WEEK
     Route: 048
     Dates: start: 20200730, end: 20210131

REACTIONS (1)
  - Hemianopia homonymous [Recovered/Resolved]

NARRATIVE: CASE EVENT DATE: 20210131
